FAERS Safety Report 19114886 (Version 2)
Quarter: 2021Q3

REPORT INFORMATION
  Report Type: Report from Study
  Country: None (occurrence: US)
  Receive Date: 20210408
  Receipt Date: 20210707
  Transmission Date: 20211014
  Serious: Yes (Hospitalization, Other)
  Sender: FDA-Public Use
  Company Number: US-ABBVIE-20K-163-3461809-00

PATIENT
  Sex: Male

DRUGS (4)
  1. HUMIRA [Suspect]
     Active Substance: ADALIMUMAB
     Dosage: DAY 15
     Route: 058
     Dates: start: 20200626, end: 20200626
  2. HUMIRA [Suspect]
     Active Substance: ADALIMUMAB
     Indication: CROHN^S DISEASE
     Route: 058
     Dates: start: 2020, end: 2020
  3. HUMIRA [Suspect]
     Active Substance: ADALIMUMAB
     Indication: CROHN^S DISEASE
     Dosage: DAY 1
     Route: 058
     Dates: start: 20200612, end: 20200612
  4. HUMIRA [Suspect]
     Active Substance: ADALIMUMAB
     Route: 058
     Dates: start: 2020

REACTIONS (24)
  - Nausea [Recovered/Resolved]
  - Diarrhoea haemorrhagic [Not Recovered/Not Resolved]
  - Pyrexia [Recovered/Resolved]
  - Abdominal pain upper [Recovering/Resolving]
  - Accident at work [Unknown]
  - Infection [Unknown]
  - Rectal haemorrhage [Recovered/Resolved]
  - Impaired work ability [Unknown]
  - Weight decreased [Unknown]
  - Nausea [Unknown]
  - Faeces soft [Unknown]
  - Fear [Recovering/Resolving]
  - Cough [Unknown]
  - Constipation [Recovered/Resolved]
  - Insomnia [Not Recovered/Not Resolved]
  - Depressed mood [Recovered/Resolved]
  - Decreased appetite [Unknown]
  - Decreased appetite [Recovered/Resolved]
  - Weight decreased [Recovered/Resolved]
  - Impaired work ability [Not Recovered/Not Resolved]
  - Anxiety [Not Recovered/Not Resolved]
  - Vomiting [Unknown]
  - Diarrhoea haemorrhagic [Recovered/Resolved]
  - Frequent bowel movements [Unknown]

NARRATIVE: CASE EVENT DATE: 2020
